FAERS Safety Report 22990028 (Version 2)
Quarter: 2023Q4

REPORT INFORMATION
  Report Type: Spontaneous
  Country: US (occurrence: US)
  Receive Date: 20230927
  Receipt Date: 20231107
  Transmission Date: 20240110
  Serious: No
  Sender: FDA-Public Use
  Company Number: US-SA-SAC20230925000673

PATIENT
  Sex: Female

DRUGS (2)
  1. DUPIXENT [Suspect]
     Active Substance: DUPILUMAB
     Indication: Dermatitis atopic
     Dosage: 400 MG, 1X
     Route: 058
  2. DUPIXENT [Suspect]
     Active Substance: DUPILUMAB
     Dosage: 200 MG, QOW
     Route: 058

REACTIONS (8)
  - Periorbital swelling [Unknown]
  - Vision blurred [Recovered/Resolved]
  - Condition aggravated [Unknown]
  - Pain in extremity [Recovered/Resolved]
  - Eye pruritus [Recovered/Resolved]
  - Arthralgia [Unknown]
  - Dermatitis atopic [Unknown]
  - Drug effect less than expected [Unknown]
